FAERS Safety Report 10708337 (Version 2)
Quarter: 2015Q1

REPORT INFORMATION
  Report Type: Spontaneous
  Country: US (occurrence: US)
  Receive Date: 20150113
  Receipt Date: 20150113
  Transmission Date: 20150721
  Serious: No
  Sender: FDA-Public Use
  Company Number: US-CELGENEUS-USA-2014095048

PATIENT
  Age: 68 Year
  Sex: Male

DRUGS (6)
  1. OTEZLA [Suspect]
     Active Substance: APREMILAST
     Indication: BLADDER CANCER
     Route: 048
     Dates: start: 20140725
  2. FAMVIR [Concomitant]
     Active Substance: FAMCICLOVIR
     Indication: NEUROPATHY PERIPHERAL
     Route: 048
     Dates: start: 20131028
  3. OTEZLA [Suspect]
     Active Substance: APREMILAST
     Indication: PSORIATIC ARTHROPATHY
     Route: 048
     Dates: start: 2014
  4. OTEZLA [Suspect]
     Active Substance: APREMILAST
     Route: 048
     Dates: start: 2014
  5. ENBREL [Concomitant]
     Active Substance: ETANERCEPT
     Indication: PROSTATIC SPECIFIC ANTIGEN
     Route: 058
     Dates: start: 20120113, end: 2014
  6. BETAMETHASONE [Concomitant]
     Active Substance: BETAMETHASONE
     Indication: PROSTATIC SPECIFIC ANTIGEN
     Dosage: 500 MILLIGRAM
     Route: 061
     Dates: start: 20140228

REACTIONS (3)
  - Abdominal distension [Recovered/Resolved]
  - Diarrhoea [Recovered/Resolved]
  - Abdominal pain [Recovered/Resolved]

NARRATIVE: CASE EVENT DATE: 201407
